FAERS Safety Report 8282620-X (Version None)
Quarter: 2012Q2

REPORT INFORMATION
  Report Type: 
  Country: None (occurrence: None)
  Receive Date: 20120411
  Receipt Date: 20120406
  Transmission Date: 20120825
  Serious: Yes (Other)
  Sender: FDA-Public Use
  Company Number: A0966626A

PATIENT
  Sex: Female

DRUGS (2)
  1. TRAMADOL HYDROCHLORIDE [Suspect]
     Indication: HEADACHE
     Dosage: 50 MG
  2. SODIUM FLUORIDE + POTASSIUM NITRATE (FORMULATION UNKNOWN) (SODIUM FLUO [Suspect]
     Indication: DENTAL CARE
     Dosage: DENTAL
     Route: 004
     Dates: start: 20120217

REACTIONS (2)
  - CONVULSION [None]
  - HEADACHE [None]
